FAERS Safety Report 16606958 (Version 1)
Quarter: 2019Q3

REPORT INFORMATION
  Report Type: Spontaneous
  Country: US (occurrence: US)
  Receive Date: 20190722
  Receipt Date: 20190722
  Transmission Date: 20191004
  Serious: No
  Sender: FDA-Public Use
  Company Number: US-ASTRAZENECA-2019SF01137

PATIENT
  Sex: Male
  Weight: 76.2 kg

DRUGS (2)
  1. SEROQUEL [Suspect]
     Active Substance: QUETIAPINE FUMARATE
     Route: 048
  2. SEROQUEL [Suspect]
     Active Substance: QUETIAPINE FUMARATE
     Dosage: QUETIAPINE FUMARATE 600 MG DAILY
     Route: 048
     Dates: start: 20161227, end: 20171206

REACTIONS (3)
  - Intentional product misuse [Unknown]
  - Eating disorder [Unknown]
  - Weight decreased [Unknown]
